FAERS Safety Report 10203669 (Version 1)
Quarter: 2014Q2

REPORT INFORMATION
  Report Type: Spontaneous
  Country: US (occurrence: US)
  Receive Date: 20140529
  Receipt Date: 20140529
  Transmission Date: 20141212
  Serious: No
  Sender: FDA-Public Use
  Company Number: US-JNJFOC-20140511436

PATIENT
  Age: 57 Year
  Sex: Female

DRUGS (5)
  1. DURAGESIC [Suspect]
     Indication: PAIN
     Dosage: ONCE EVERY 3-4 DAYS
     Route: 062
  2. AMLODIPINE / BENAZEPRIL [Concomitant]
     Indication: HYPERTENSION
     Dosage: 10/20MG DAILY
     Route: 048
     Dates: start: 2013
  3. KLONOPIN [Concomitant]
     Indication: PANIC DISORDER
     Route: 048
     Dates: start: 1997
  4. AMITRIPTYLINE [Concomitant]
     Indication: SLEEP DISORDER THERAPY
     Route: 048
     Dates: start: 1991
  5. FLEXERIL [Concomitant]
     Indication: MUSCLE RELAXANT THERAPY
     Route: 048
     Dates: start: 2014

REACTIONS (3)
  - Pain [Not Recovered/Not Resolved]
  - Drug dose omission [Unknown]
  - Inappropriate schedule of drug administration [Unknown]
